FAERS Safety Report 8834745 (Version 3)
Quarter: 2012Q4

REPORT INFORMATION
  Report Type: 
  Country: US (occurrence: US)
  Receive Date: 20121010
  Receipt Date: 20121226
  Transmission Date: 20130627
  Serious: Yes (Other)
  Sender: FDA-Public Use
  Company Number: US-JNJFOC-20121001092

PATIENT
  Sex: Male

DRUGS (12)
  1. RISPERDAL CONSTA [Suspect]
     Indication: PRODUCT USED FOR UNKNOWN INDICATION
     Route: 030
     Dates: start: 2006
  2. PRINIVIL [Concomitant]
     Indication: BLOOD PRESSURE
     Route: 048
     Dates: start: 2009
  3. PRINIVIL [Concomitant]
     Indication: BLOOD PRESSURE
     Route: 048
     Dates: start: 20121113
  4. CRESTOR [Concomitant]
     Indication: BLOOD CHOLESTEROL
     Route: 048
     Dates: start: 2006
  5. CRESTOR [Concomitant]
     Indication: BLOOD CHOLESTEROL
     Route: 048
     Dates: start: 20121113
  6. LOVAZA [Concomitant]
     Indication: BLOOD TRIGLYCERIDES
     Route: 048
     Dates: start: 20121113
  7. LOVAZA [Concomitant]
     Indication: BLOOD TRIGLYCERIDES
     Route: 048
     Dates: start: 2006
  8. ZANTAC [Concomitant]
     Indication: GASTROOESOPHAGEAL REFLUX DISEASE
     Route: 048
     Dates: start: 2012
  9. ZANTAC [Concomitant]
     Indication: GASTROOESOPHAGEAL REFLUX DISEASE
     Route: 048
     Dates: start: 20120824
  10. FLOMAX [Concomitant]
     Route: 048
     Dates: start: 20121113
  11. MOBIC [Concomitant]
     Route: 048
     Dates: start: 20121113
  12. VITAMIN D3 [Concomitant]
     Route: 048
     Dates: start: 20120824

REACTIONS (3)
  - Loss of consciousness [Not Recovered/Not Resolved]
  - Panic attack [Not Recovered/Not Resolved]
  - Heart rate irregular [Not Recovered/Not Resolved]
